FAERS Safety Report 25708089 (Version 1)
Quarter: 2025Q3

REPORT INFORMATION
  Report Type: Spontaneous
  Country: EU (occurrence: EU)
  Receive Date: 20250820
  Receipt Date: 20250820
  Transmission Date: 20251021
  Serious: Yes (Life-Threatening, Hospitalization, Other)
  Sender: ELI LILLY AND COMPANY
  Company Number: EU-ELI_LILLY_AND_COMPANY-FR202508016544

PATIENT
  Age: 87 Year
  Sex: Female
  Weight: 75 kg

DRUGS (7)
  1. GEMCITABINE HYDROCHLORIDE [Suspect]
     Active Substance: GEMCITABINE HYDROCHLORIDE
     Indication: Metastases to liver
     Dosage: 1790 MG, WEEKLY (1/W)
     Route: 042
     Dates: start: 20250513, end: 20250513
  2. GEMCITABINE HYDROCHLORIDE [Suspect]
     Active Substance: GEMCITABINE HYDROCHLORIDE
     Dosage: 1770 MG, WEEKLY (1/W)
     Route: 065
     Dates: start: 20250611
  3. GEMCITABINE HYDROCHLORIDE [Suspect]
     Active Substance: GEMCITABINE HYDROCHLORIDE
     Dosage: 1424 MG, WEEKLY (1/W)
     Route: 065
     Dates: start: 20250617
  4. GEMCITABINE HYDROCHLORIDE [Suspect]
     Active Substance: GEMCITABINE HYDROCHLORIDE
     Dosage: 1416 MG, WEEKLY (1/W)
     Route: 065
     Dates: start: 20250708
  5. GEMCITABINE HYDROCHLORIDE [Suspect]
     Active Substance: GEMCITABINE HYDROCHLORIDE
     Dosage: 1416 MG, WEEKLY (1/W)
     Route: 065
     Dates: start: 20250715
  6. ASPIRIN [Concomitant]
     Active Substance: ASPIRIN
     Indication: Prosthesis implantation
  7. ESCITALOPRAM [Concomitant]
     Active Substance: ESCITALOPRAM OXALATE
     Indication: Depression

REACTIONS (2)
  - Infusion related reaction [Recovered/Resolved]
  - Anaemia [Unknown]

NARRATIVE: CASE EVENT DATE: 20250513
